FAERS Safety Report 20867830 (Version 2)
Quarter: 2022Q3

REPORT INFORMATION
  Report Type: Spontaneous
  Country: US (occurrence: US)
  Receive Date: 20220524
  Receipt Date: 20220715
  Transmission Date: 20221027
  Serious: Yes (Hospitalization)
  Sender: FDA-Public Use
  Company Number: US-PFIZER INC-202200752371

PATIENT
  Age: 50 Year
  Sex: Female

DRUGS (2)
  1. INLYTA [Suspect]
     Active Substance: AXITINIB
     Dosage: 4 MG, 2X/DAY (TAKE 4 TABLETS EVERY 12 HOURS)
     Dates: start: 20220501
  2. IBUPROFEN [Concomitant]
     Active Substance: IBUPROFEN
     Dosage: UNK

REACTIONS (6)
  - Blood pressure increased [Unknown]
  - Constipation [Unknown]
  - Fatigue [Unknown]
  - Cough [Unknown]
  - Dysphonia [Unknown]
  - Decreased appetite [Unknown]
